FAERS Safety Report 9460283 (Version 1)
Quarter: 2013Q3

REPORT INFORMATION
  Report Type: Spontaneous
  Country: US (occurrence: US)
  Receive Date: 20130815
  Receipt Date: 20130815
  Transmission Date: 20140515
  Serious: Yes (Other)
  Sender: FDA-Public Use
  Company Number: US-GILEAD-2013-0081324

PATIENT
  Age: 36 Year
  Sex: Female

DRUGS (1)
  1. LETAIRIS [Suspect]
     Indication: PRODUCT USED FOR UNKNOWN INDICATION
     Dosage: 10 MG, UNK
     Route: 048
     Dates: start: 20110501

REACTIONS (4)
  - Transfusion [Recovered/Resolved]
  - Loss of consciousness [Recovered/Resolved]
  - Somnolence [Unknown]
  - Fatigue [Unknown]
